FAERS Safety Report 4396569-6 (Version None)
Quarter: 2004Q2

REPORT INFORMATION
  Report Type: 
  Country: None (occurrence: None)
  Receive Date: 20040524
  Receipt Date: 20030605
  Transmission Date: 20050107
  Serious: Yes (Hospitalization)
  Sender: FDA-Public Use
  Company Number: WSDF 341

PATIENT
  Age: 16 Year
  Sex: Male
  Weight: 137 kg

DRUGS (3)
  1. WINRHO SDF [Suspect]
     Indication: IDIOPATHIC THROMBOCYTOPENIC PURPURA
     Dosage: 50 MGC/KG, ONCE, IV
     Route: 042
     Dates: start: 20030604
  2. WINRHO SDF [Suspect]
  3. WINRHO SDF [Suspect]

REACTIONS (3)
  - BODY TEMPERATURE INCREASED [None]
  - CHILLS [None]
  - HEADACHE [None]
